FAERS Safety Report 9402393 (Version 4)
Quarter: 2014Q1

REPORT INFORMATION
  Report Type: Spontaneous
  Country: US (occurrence: US)
  Receive Date: 20130716
  Receipt Date: 20140207
  Transmission Date: 20141002
  Serious: Yes (Other)
  Sender: FDA-Public Use
  Company Number: US-PFIZER INC-2013206593

PATIENT
  Age: 62 Year
  Sex: Female
  Weight: 63.49 kg

DRUGS (8)
  1. XELJANZ [Suspect]
     Indication: RHEUMATOID ARTHRITIS
     Dosage: 5 MG, TWICE A DAY
     Route: 048
  2. XANAX [Concomitant]
     Dosage: 0.25 MG, UNK
  3. AMBIEN [Concomitant]
     Dosage: 5 MG, UNK
  4. NORVASC [Concomitant]
     Dosage: 10 MG, UNK
  5. MORPHINE SULFATE ER [Concomitant]
     Dosage: 100 MG, UNK
  6. FISH OIL [Concomitant]
     Dosage: UNK
  7. CALCIUM 500 [Concomitant]
     Dosage: UNK
  8. LORTAB 5 [Concomitant]

REACTIONS (4)
  - Rheumatoid arthritis [Unknown]
  - Fatigue [Unknown]
  - Vitamin D deficiency [Unknown]
  - Pain [Unknown]
